FAERS Safety Report 8832243 (Version 2)
Quarter: 2012Q4

REPORT INFORMATION
  Report Type: 
  Country: JP (occurrence: JP)
  Receive Date: 20121009
  Receipt Date: 20121019
  Transmission Date: 20130627
  Serious: Yes (Death, Hospitalization, Other)
  Sender: FDA-Public Use
  Company Number: JP-B.I. PHARMACEUTICALS,INC./RIDGEFIELD-2012-EU-05038GD

PATIENT
  Age: 82 Year
  Sex: Female

DRUGS (1)
  1. DABIGATRAN ETEXILATE [Suspect]
     Indication: ATRIAL FIBRILLATION
     Route: 048

REACTIONS (10)
  - Haemorrhage [Fatal]
  - Intra-abdominal haematoma [Fatal]
  - Arterial injury [Fatal]
  - Multi-organ failure [Fatal]
  - Fall [Unknown]
  - Pubis fracture [Unknown]
  - Depressed level of consciousness [Unknown]
  - Anaemia [Unknown]
  - Renal failure acute [Unknown]
  - Hyperkalaemia [Unknown]
